FAERS Safety Report 5062152-2 (Version None)
Quarter: 2006Q3

REPORT INFORMATION
  Report Type: 
  Country: None (occurrence: None)
  Receive Date: 20060726
  Receipt Date: 20060612
  Transmission Date: 20061208
  Serious: Yes (Other)
  Sender: FDA-Public Use
  Company Number: PHNU2006DE02256

PATIENT
  Age: 48 Year
  Sex: Female
  Weight: 55 kg

DRUGS (3)
  1. SANDIMMUNE [Suspect]
     Indication: RENAL TRANSPLANT
  2. TACROLIMUS [Concomitant]
     Indication: RENAL TRANSPLANT
  3. MYFORTIC [Suspect]
     Indication: RENAL TRANSPLANT
     Dosage: 1080MG/DAY
     Route: 048
     Dates: end: 20060704

REACTIONS (2)
  - COLITIS [None]
  - DIARRHOEA [None]
